FAERS Safety Report 11304012 (Version 1)
Quarter: 2015Q3

REPORT INFORMATION
  Report Type: Spontaneous
  Country: US (occurrence: US)
  Receive Date: 20150723
  Receipt Date: 20150723
  Transmission Date: 20151125
  Serious: No
  Sender: FDA-Public Use
  Company Number: US-JNJFOC-20141109927

PATIENT
  Sex: Male

DRUGS (2)
  1. PEPCID AC [Suspect]
     Active Substance: FAMOTIDINE
     Indication: DYSPEPSIA
     Dosage: 1 TABLET EVERY NIGHT
     Route: 048
  2. UNSPECIFIED CANCER MEDICATION [Concomitant]
     Indication: THROAT CANCER
     Route: 065

REACTIONS (1)
  - Constipation [Not Recovered/Not Resolved]
